FAERS Safety Report 21895615 (Version 1)
Quarter: 2023Q1

REPORT INFORMATION
  Report Type: Spontaneous
  Country: CN (occurrence: None)
  Receive Date: 20230123
  Receipt Date: 20230123
  Transmission Date: 20230418
  Serious: Yes (Other)
  Sender: FDA-Public Use
  Company Number: CN-ROCHE-3267758

PATIENT
  Age: 35 Year
  Sex: Female
  Weight: 54 kg

DRUGS (8)
  1. HERCEPTIN [Suspect]
     Active Substance: TRASTUZUMAB
     Indication: Invasive ductal breast carcinoma
     Dosage: 400 MG FOR THE FIRST TIME, THEN 300 MG, ONE CYCLE PER 21 DAYS FOR 4 CYCLES
     Route: 041
  2. HERCEPTIN [Suspect]
     Active Substance: TRASTUZUMAB
     Dosage: FORM OF ADMIN TEXT : POWDER INJECTION
     Route: 041
     Dates: start: 20221220
  3. PERJETA [Suspect]
     Active Substance: PERTUZUMAB
     Indication: Invasive ductal breast carcinoma
     Dosage: 840 MG FOR THE FIRST TIME, THEN 420 MG EACH TIME, ONE CYCLE PER 21 DAYS FOR 4 CYCLES
     Route: 041
  4. PERJETA [Suspect]
     Active Substance: PERTUZUMAB
     Dosage: FORM OF ADMIN TEXT : POWDER INJECTION
     Route: 041
     Dates: start: 20221220
  5. DOCETAXEL [Concomitant]
     Active Substance: DOCETAXEL
     Indication: Invasive ductal breast carcinoma
     Dosage: ONE CYCLE PER 21 DAYS FOR 4 CYCLES
  6. CYCLOPHOSPHAMIDE [Concomitant]
     Active Substance: CYCLOPHOSPHAMIDE
     Indication: Invasive ductal breast carcinoma
     Dosage: ONE CYCLE PER 21 DAYS FOR 4 CYCLES
  7. HUMAN GRANULOCYTE STIMULATING FACTOR NEEDLE (UNK INGREDIENTS) [Concomitant]
  8. DI YU SHENG BAI [Concomitant]

REACTIONS (1)
  - Myelosuppression [Recovering/Resolving]

NARRATIVE: CASE EVENT DATE: 20221224
